FAERS Safety Report 10196288 (Version 2)
Quarter: 2014Q2

REPORT INFORMATION
  Report Type: Spontaneous
  Country: US (occurrence: US)
  Receive Date: 20140527
  Receipt Date: 20140620
  Transmission Date: 20141212
  Serious: Yes (Other)
  Sender: FDA-Public Use
  Company Number: US-AMGEN INC.-USASP2014037616

PATIENT
  Age: 64 Year
  Sex: Female

DRUGS (7)
  1. PROLIA [Suspect]
     Indication: OSTEOPOROSIS POSTMENOPAUSAL
     Dosage: UNK
     Route: 065
     Dates: start: 2013
  2. INSULIN [Concomitant]
     Indication: DIABETES MELLITUS
     Route: 065
  3. CALCIUM [Concomitant]
     Route: 065
  4. MAGNESIUM [Concomitant]
     Route: 065
  5. BENICAR [Concomitant]
     Route: 065
  6. BABY ASPIRIN [Concomitant]
     Route: 065
  7. MULTIVITAMIN                       /00097801/ [Concomitant]
     Route: 065

REACTIONS (6)
  - Fractured sacrum [Unknown]
  - Wrist fracture [Unknown]
  - Loss of consciousness [Unknown]
  - Lumbar vertebral fracture [Unknown]
  - Breast disorder [Unknown]
  - Mobility decreased [Unknown]
